FAERS Safety Report 6382040-9 (Version None)
Quarter: 2009Q3

REPORT INFORMATION
  Report Type: 
  Country: None (occurrence: None)
  Receive Date: 20090930
  Receipt Date: 20090730
  Transmission Date: 20100115
  Serious: No
  Sender: FDA-Public Use
  Company Number: US-BAYER-200928979NA

PATIENT
  Age: 59 Year
  Sex: Female

DRUGS (1)
  1. ANGELIQ [Suspect]
     Indication: MENOPAUSE
     Route: 048
     Dates: start: 20090501

REACTIONS (1)
  - VAGINAL HAEMORRHAGE [None]
